FAERS Safety Report 8659687 (Version 5)
Quarter: 2013Q2

REPORT INFORMATION
  Report Type: Spontaneous
  Country: US (occurrence: US)
  Receive Date: 20120711
  Receipt Date: 20130418
  Transmission Date: 20140414
  Serious: Yes (Other)
  Sender: FDA-Public Use
  Company Number: US-PFIZER INC-2012161769

PATIENT
  Age: 75 Year
  Sex: Female
  Weight: 85.3 kg

DRUGS (4)
  1. LYRICA [Suspect]
     Indication: NEUROPATHY PERIPHERAL
     Dosage: 75 MG , 1X/DAY
     Route: 048
     Dates: start: 2007, end: 2012
  2. LYRICA [Suspect]
     Indication: INTERVERTEBRAL DISC PROTRUSION
     Dosage: 75 MG, 3X/DAY
     Route: 048
     Dates: start: 2012, end: 2012
  3. LYRICA [Suspect]
     Indication: NERVE INJURY
     Dosage: 75 MG, 1X/DAY
     Route: 048
     Dates: start: 2012, end: 201207
  4. ASPIRIN [Concomitant]
     Dosage: UNK

REACTIONS (5)
  - Intervertebral disc protrusion [Recovering/Resolving]
  - Nerve injury [Recovering/Resolving]
  - Pain [Unknown]
  - Blood pressure abnormal [Unknown]
  - Neuropathy peripheral [Unknown]
